FAERS Safety Report 21060778 (Version 2)
Quarter: 2023Q1

REPORT INFORMATION
  Report Type: Spontaneous
  Country: US (occurrence: US)
  Receive Date: 20220709
  Receipt Date: 20230118
  Transmission Date: 20230418
  Serious: No
  Sender: FDA-Public Use
  Company Number: US-BRISTOL-MYERS SQUIBB COMPANY-2022-070511

PATIENT
  Age: 60 Year
  Sex: Female
  Weight: 109.32 kg

DRUGS (2)
  1. REVLIMID [Suspect]
     Active Substance: LENALIDOMIDE
     Indication: Plasma cell myeloma
     Dosage: FREQ: DAILY DAYS 1-21 EVERY 28 DAYS .
     Route: 048
     Dates: start: 20211026
  2. REVLIMID [Suspect]
     Active Substance: LENALIDOMIDE
     Dosage: DAYS 1-21 OF 28 DAY CYCLE
     Route: 048
     Dates: start: 20220523

REACTIONS (2)
  - White blood cell count decreased [Unknown]
  - Laboratory test abnormal [Not Recovered/Not Resolved]

NARRATIVE: CASE EVENT DATE: 20220704
